FAERS Safety Report 15050235 (Version 2)
Quarter: 2018Q3

REPORT INFORMATION
  Report Type: Spontaneous
  Country: US (occurrence: US)
  Receive Date: 20180622
  Receipt Date: 20180703
  Transmission Date: 20181010
  Serious: Yes (Other)
  Sender: FDA-Public Use
  Company Number: US-ASPEN-GLO2018US005805

PATIENT
  Age: 14 Month
  Sex: Male

DRUGS (4)
  1. BUSULFAN. [Suspect]
     Active Substance: BUSULFAN
     Indication: BONE MARROW CONDITIONING REGIMEN
     Dosage: REDUCED INTENSITY CONDITIONING
     Route: 065
  2. FLUDARABINE [Suspect]
     Active Substance: FLUDARABINE PHOSPHATE
     Indication: BONE MARROW CONDITIONING REGIMEN
     Dosage: REDUCED INTENSITY CONDITIONING
     Route: 065
  3. ANTITHYMOCYTE IMMUNOGLOBULIN [Suspect]
     Active Substance: THYMOCYTE IMMUNE GLOBULIN NOS
     Indication: BONE MARROW CONDITIONING REGIMEN
     Dosage: REDUCED INTENSITY CONDITIONING
     Route: 065
  4. THIOTEPA. [Suspect]
     Active Substance: THIOTEPA
     Indication: BONE MARROW CONDITIONING REGIMEN
     Dosage: REDUCED INTENSITY CONDITIONING
     Route: 065

REACTIONS (9)
  - Thrombotic microangiopathy [Unknown]
  - Bacteraemia [Unknown]
  - Gastrointestinal haemorrhage [Unknown]
  - Candida infection [Unknown]
  - Hypertensive crisis [Unknown]
  - Graft versus host disease [Unknown]
  - Fluid overload [Unknown]
  - Post transplant lymphoproliferative disorder [Unknown]
  - Venoocclusive disease [Unknown]
